FAERS Safety Report 23847053 (Version 2)
Quarter: 2024Q2

REPORT INFORMATION
  Report Type: Other
  Country: US (occurrence: None)
  Receive Date: 20240513
  Receipt Date: 20240515
  Transmission Date: 20240716
  Serious: Yes (Death)
  Sender: FDA-Public Use
  Company Number: US-ROCHE-3560639

PATIENT
  Age: 52 Year
  Sex: Female

DRUGS (2)
  1. RITUXAN [Suspect]
     Active Substance: RITUXIMAB
     Indication: Rheumatoid arthritis
     Dosage: VIAL, INFUSE 1000MG INTRAVENOUSLY ON DAY(S) 1 AND DAY(S) 15, REPEAT EVERY 6 MONTH(S)
     Route: 042
  2. RITUXAN [Suspect]
     Active Substance: RITUXIMAB
     Dosage: 500 MG SINGLE-USE VIAL
     Route: 042
     Dates: start: 20230502, end: 20240502

REACTIONS (1)
  - Death [Fatal]
